FAERS Safety Report 21505510 (Version 1)
Quarter: 2022Q4

REPORT INFORMATION
  Report Type: Report from Study
  Country: US (occurrence: US)
  Receive Date: 20221026
  Receipt Date: 20221026
  Transmission Date: 20230113
  Serious: No
  Sender: FDA-Public Use
  Company Number: US-ABBVIE-4165047

PATIENT
  Sex: Male

DRUGS (2)
  1. SKYRIZI [Suspect]
     Active Substance: RISANKIZUMAB-RZAA
     Indication: Guttate psoriasis
     Dosage: WEEK 0, WEEK 4, THEN EVERY 12 WEEKS, FORM STRENGTH: 150 MILLIGRAM/MILLILITERS
     Route: 058
     Dates: start: 2021
  2. SKYRIZI [Suspect]
     Active Substance: RISANKIZUMAB-RZAA
     Dosage: FORM STRENGTH: 150 MILLIGRAM/MILLILITERS
     Route: 058

REACTIONS (1)
  - Off label use [Unknown]
